FAERS Safety Report 13082232 (Version 1)
Quarter: 2017Q1

REPORT INFORMATION
  Report Type: Spontaneous
  Country: US (occurrence: US)
  Receive Date: 20170103
  Receipt Date: 20170103
  Transmission Date: 20170428
  Serious: Yes (Hospitalization)
  Sender: FDA-Public Use
  Company Number: US-B.I. PHARMACEUTICALS,INC./RIDGEFIELD-2016-BI-088286

PATIENT
  Age: 35 Year
  Sex: Female

DRUGS (1)
  1. ZANTAC [Suspect]
     Active Substance: RANITIDINE HYDROCHLORIDE
     Indication: DYSPEPSIA
     Dosage: DAILY DOSE: 2 TABLETS OF 150MG PRN
     Route: 048
     Dates: start: 2009

REACTIONS (5)
  - Drug level changed [Unknown]
  - Nephrolithiasis [Not Recovered/Not Resolved]
  - Urinary tract infection [Recovered/Resolved]
  - Cardiac disorder [Recovered/Resolved]
  - Kidney infection [Recovered/Resolved]

NARRATIVE: CASE EVENT DATE: 20161127
